FAERS Safety Report 20420896 (Version 1)
Quarter: 2022Q1

REPORT INFORMATION
  Report Type: Spontaneous
  Country: US (occurrence: None)
  Receive Date: 20220202
  Receipt Date: 20220202
  Transmission Date: 20220424
  Serious: Yes (Life-Threatening, Other)
  Sender: FDA-Public Use
  Company Number: None

PATIENT
  Age: 0 Year
  Sex: Female
  Weight: 0.47 kg

DRUGS (1)
  1. SURVANTA [Suspect]
     Active Substance: BERACTANT
     Indication: Neonatal respiratory distress syndrome
     Dosage: FREQUENCY : TWICE A DAY;?
     Route: 039
     Dates: start: 20220122, end: 20220122

REACTIONS (1)
  - Endotracheal intubation complication [None]

NARRATIVE: CASE EVENT DATE: 20220122
